FAERS Safety Report 7009123-4 (Version None)
Quarter: 2010Q3

REPORT INFORMATION
  Report Type: 
  Country: None (occurrence: None)
  Receive Date: 20100923
  Receipt Date: 20100913
  Transmission Date: 20110219
  Serious: Yes (Hospitalization, Other)
  Sender: FDA-Public Use
  Company Number: FR-JNJFOC-20100702859

PATIENT
  Sex: Female
  Weight: 22 kg

DRUGS (23)
  1. TOPIRAMATE [Suspect]
     Indication: EPILEPSY
     Route: 048
     Dates: start: 20100329
  2. TOPIRAMATE [Suspect]
     Route: 048
     Dates: start: 20100329
  3. TOPIRAMATE [Suspect]
     Route: 048
     Dates: start: 20100329
  4. TOPIRAMATE [Suspect]
     Route: 048
     Dates: start: 20100329
  5. RIVOTRIL [Suspect]
     Indication: EPILEPSY
     Route: 065
  6. RIVOTRIL [Suspect]
     Dosage: 8-10-8-10 GTT PER DAY
     Route: 065
  7. RIVOTRIL [Suspect]
     Route: 065
  8. RIVOTRIL [Suspect]
     Route: 065
  9. RIVOTRIL [Suspect]
     Route: 065
  10. RIVOTRIL [Suspect]
     Route: 065
  11. RIVOTRIL [Suspect]
     Route: 065
  12. ZOVIRAX [Concomitant]
     Indication: PRODUCT USED FOR UNKNOWN INDICATION
     Dates: start: 20100321
  13. DILANTIN [Concomitant]
     Indication: PRODUCT USED FOR UNKNOWN INDICATION
     Dates: start: 20100323, end: 20100331
  14. DEPAKENE [Concomitant]
     Indication: PRODUCT USED FOR UNKNOWN INDICATION
     Dates: start: 20100323, end: 20100331
  15. HYPNOVEL [Concomitant]
     Indication: PRODUCT USED FOR UNKNOWN INDICATION
     Route: 042
     Dates: start: 20100326
  16. KEPPRA [Concomitant]
     Indication: PRODUCT USED FOR UNKNOWN INDICATION
     Dates: start: 20100329
  17. SABRIL [Concomitant]
     Indication: PRODUCT USED FOR UNKNOWN INDICATION
     Dates: start: 20100404, end: 20100414
  18. TRILEPTAL [Concomitant]
     Indication: PRODUCT USED FOR UNKNOWN INDICATION
     Dates: start: 20100414, end: 20100503
  19. TRILEPTAL [Concomitant]
     Dates: start: 20100414, end: 20100503
  20. MOPRAL [Concomitant]
     Indication: PRODUCT USED FOR UNKNOWN INDICATION
  21. DUPHALAC [Concomitant]
     Indication: PRODUCT USED FOR UNKNOWN INDICATION
  22. IBUPROFEN TABLETS [Concomitant]
     Indication: PRODUCT USED FOR UNKNOWN INDICATION
  23. DOLIPRANE [Concomitant]
     Indication: PRODUCT USED FOR UNKNOWN INDICATION

REACTIONS (4)
  - COMA [None]
  - CONDITION AGGRAVATED [None]
  - CONVULSION [None]
  - DRUG INEFFECTIVE [None]
